FAERS Safety Report 6670696-2 (Version None)
Quarter: 2010Q2

REPORT INFORMATION
  Report Type: 
  Country: None (occurrence: None)
  Receive Date: 20100407
  Receipt Date: 20100331
  Transmission Date: 20101027
  Serious: Yes (Hospitalization, Disabling, Other)
  Sender: FDA-Public Use
  Company Number: US-ASTRAZENECA-2007UW09153

PATIENT
  Sex: Male
  Weight: 151.5 kg

DRUGS (4)
  1. SEROQUEL [Suspect]
     Dosage: 200 MG-400MG
     Route: 048
     Dates: start: 19990621
  2. COGENTIN [Concomitant]
     Dates: start: 20010501
  3. ZESTRIL [Concomitant]
     Dates: start: 20010105
  4. MEVACOR [Concomitant]
     Dates: start: 20060501

REACTIONS (5)
  - DIABETES MELLITUS [None]
  - DIABETES MELLITUS INADEQUATE CONTROL [None]
  - DIABETIC KETOACIDOSIS [None]
  - DIABETIC RETINOPATHY [None]
  - HYPOGLYCAEMIA [None]
